FAERS Safety Report 11992155 (Version 1)
Quarter: 2016Q1

REPORT INFORMATION
  Report Type: Spontaneous
  Country: US (occurrence: US)
  Receive Date: 20160203
  Receipt Date: 20160203
  Transmission Date: 20160526
  Serious: No
  Sender: FDA-Public Use
  Company Number: US-JNJFOC-20151217546

PATIENT
  Age: 60 Year
  Sex: Female
  Weight: 135.17 kg

DRUGS (2)
  1. TYLENOL EXTRA STRENGTH [Suspect]
     Active Substance: ACETAMINOPHEN
     Indication: NECK PAIN
     Dosage: 1-2 TIMES A DAY, AS NEEDED
     Route: 048
  2. TYLENOL EXTRA STRENGTH [Suspect]
     Active Substance: ACETAMINOPHEN
     Route: 048

REACTIONS (4)
  - Off label use [Unknown]
  - Incorrect drug administration duration [Unknown]
  - Incorrect dose administered [Unknown]
  - Therapeutic response decreased [Unknown]
